FAERS Safety Report 9405222 (Version 1)
Quarter: 2013Q3

REPORT INFORMATION
  Report Type: Spontaneous
  Country: DE (occurrence: DE)
  Receive Date: 20130717
  Receipt Date: 20130717
  Transmission Date: 20140515
  Serious: Yes (Congenital Anomaly, Other)
  Sender: FDA-Public Use
  Company Number: PHHY2013DE074982

PATIENT
  Sex: 0

DRUGS (12)
  1. ALLOPURINOL [Suspect]
     Route: 064
  2. METHYLDOPA [Suspect]
     Route: 064
  3. METOPROLOL [Suspect]
     Route: 064
  4. MOXONIDINE [Suspect]
     Route: 064
  5. FUROSEMIDE [Suspect]
     Route: 064
  6. CLONIDINE [Suspect]
     Route: 064
  7. ALFACALCIDOL [Suspect]
     Route: 064
  8. ENOXAPARIN [Suspect]
     Route: 064
  9. COLECALCIFEROL [Suspect]
     Route: 064
  10. DARBEPOETIN ALFA [Suspect]
  11. DANAPAROID [Suspect]
     Route: 064
  12. CORTICOSTEROIDS [Suspect]
     Route: 064

REACTIONS (5)
  - Patent ductus arteriosus [Unknown]
  - Atrial septal defect [Unknown]
  - Umbilical hernia [Unknown]
  - Premature baby [Unknown]
  - Foetal exposure during pregnancy [Unknown]
